FAERS Safety Report 9051960 (Version 1)
Quarter: 2013Q1

REPORT INFORMATION
  Report Type: Spontaneous
  Country: AU (occurrence: AU)
  Receive Date: 20130207
  Receipt Date: 20130207
  Transmission Date: 20140127
  Serious: Yes (Other)
  Sender: FDA-Public Use
  Company Number: AU-JNJFOC-20130201919

PATIENT
  Sex: 0

DRUGS (6)
  1. ALFENTANIL [Suspect]
     Indication: ANALGESIC THERAPY
     Route: 065
  2. ALFENTANIL [Suspect]
     Indication: ANALGESIC THERAPY
     Dosage: INCREASE IN THE BOLUS DOSE BY 50%
     Route: 065
  3. PARACETAMOL [Suspect]
     Route: 048
  4. PARACETAMOL [Suspect]
     Indication: ANALGESIC THERAPY
     Route: 048
  5. MORPHINE [Suspect]
     Indication: ANALGESIC THERAPY
     Route: 065
  6. PARACETAMOL [Suspect]
     Indication: ANALGESIC THERAPY
     Route: 042

REACTIONS (2)
  - Respiratory rate decreased [Unknown]
  - Treatment failure [None]
